FAERS Safety Report 24112796 (Version 1)
Quarter: 2024Q3

REPORT INFORMATION
  Report Type: Spontaneous
  Country: US (occurrence: US)
  Receive Date: 20240719
  Receipt Date: 20240719
  Transmission Date: 20241016
  Serious: No
  Sender: PFIZER
  Company Number: US-PFIZER INC-PV202400094233

PATIENT
  Age: 61 Year
  Sex: Male

DRUGS (1)
  1. NURTEC ODT [Suspect]
     Active Substance: RIMEGEPANT SULFATE
     Dosage: 75 MG, AS NEEDED (DISSOLVE ON TONGUE, MAX 1 TABLET PER 24 HOURS)
     Route: 048

REACTIONS (1)
  - Drug ineffective [Unknown]
